FAERS Safety Report 7535518-6 (Version None)
Quarter: 2011Q2

REPORT INFORMATION
  Report Type: 
  Country: None (occurrence: None)
  Receive Date: 20110609
  Receipt Date: 20110531
  Transmission Date: 20111010
  Serious: Yes (Hospitalization)
  Sender: FDA-Public Use
  Company Number: SE-JNJFOC-20110600084

PATIENT
  Age: 46 Year
  Sex: Female

DRUGS (1)
  1. CONCERTA [Suspect]
     Indication: ATTENTION DEFICIT/HYPERACTIVITY DISORDER
     Dosage: USED FOR ABOUT 2 YEARS, THE DOSE WAS 54 MG IN THE MORNING, 36 MG AT LUNCH AND 36 AT DINNER
     Route: 048

REACTIONS (3)
  - CEREBROVASCULAR ACCIDENT [None]
  - INCORRECT DOSE ADMINISTERED [None]
  - INAPPROPRIATE SCHEDULE OF DRUG ADMINISTRATION [None]
